FAERS Safety Report 16815306 (Version 1)
Quarter: 2019Q4

REPORT INFORMATION
  Report Type: Spontaneous
  Country: US (occurrence: US)
  Receive Date: 20190916
  Receipt Date: 20190916
  Transmission Date: 20200122
  Serious: Yes (Other)
  Sender: FDA-Public Use
  Company Number: None

PATIENT
  Age: 21 Year
  Sex: Male
  Weight: 44.5 kg

DRUGS (4)
  1. EPIDIOLEX [Suspect]
     Active Substance: CANNABIDIOL
     Indication: SEIZURE
     Route: 048
     Dates: end: 20190906
  2. CLOBAZAM. [Suspect]
     Active Substance: CLOBAZAM
  3. LAMICTAL [Suspect]
     Active Substance: LAMOTRIGINE
  4. BENZOS [Suspect]
     Active Substance: BENZODIAZEPINE

REACTIONS (3)
  - Product storage error [None]
  - Product colour issue [None]
  - Product quality issue [None]

NARRATIVE: CASE EVENT DATE: 20190911
